FAERS Safety Report 7329299-9 (Version None)
Quarter: 2011Q1

REPORT INFORMATION
  Report Type: 
  Country: None (occurrence: None)
  Receive Date: 20110303
  Receipt Date: 20110225
  Transmission Date: 20110831
  Serious: Yes (Other)
  Sender: FDA-Public Use
  Company Number: B0702695A

PATIENT
  Age: 73 Year
  Sex: Male

DRUGS (4)
  1. ALOSITOL [Concomitant]
     Route: 048
  2. URIEF [Concomitant]
     Route: 048
  3. NORVASC [Concomitant]
     Route: 048
  4. AVOLVE [Suspect]
     Indication: BENIGN PROSTATIC HYPERPLASIA
     Dosage: .5MG PER DAY
     Route: 048
     Dates: start: 20101001, end: 20110101

REACTIONS (1)
  - JAUNDICE [None]
